FAERS Safety Report 19904895 (Version 1)
Quarter: 2021Q4

REPORT INFORMATION
  Report Type: Spontaneous
  Country: FR (occurrence: FR)
  Receive Date: 20211001
  Receipt Date: 20211001
  Transmission Date: 20220304
  Serious: Yes (Other)
  Sender: FDA-Public Use
  Company Number: None

PATIENT
  Age: 59 Year
  Sex: Female
  Weight: 57 kg

DRUGS (1)
  1. LEVONORGESTREL [Suspect]
     Active Substance: LEVONORGESTREL
     Indication: Heavy menstrual bleeding
     Dosage: 14 ?G, CONT
     Route: 015
     Dates: start: 20171007, end: 20210910

REACTIONS (5)
  - Device expulsion [Recovered/Resolved]
  - Device breakage [Recovered/Resolved]
  - Device physical property issue [Recovered/Resolved]
  - Medical device monitoring error [Recovered/Resolved]
  - Device use issue [Recovered/Resolved]

NARRATIVE: CASE EVENT DATE: 20201007
